FAERS Safety Report 6471696-8 (Version None)
Quarter: 2009Q4

REPORT INFORMATION
  Report Type: 
  Country: None (occurrence: None)
  Receive Date: 20091203
  Receipt Date: 20080321
  Transmission Date: 20100525
  Serious: Yes (Hospitalization, Other)
  Sender: FDA-Public Use
  Company Number: US-ELI_LILLY_AND_COMPANY-US200803005109

PATIENT
  Sex: Female
  Weight: 113.38 kg

DRUGS (5)
  1. BYETTA [Suspect]
     Indication: TYPE 2 DIABETES MELLITUS
     Dosage: 5 UG, 2/D
     Route: 058
     Dates: start: 20080101, end: 20080213
  2. BYETTA [Suspect]
     Dosage: 5 UG, 2/D
     Route: 058
     Dates: start: 20080216, end: 20080218
  3. BYETTA [Suspect]
     Dosage: 5 UG, 2/D
     Route: 058
     Dates: start: 20080301
  4. GLYBURIDE AND METFORMIN HCL [Concomitant]
     Indication: DIABETES MELLITUS
     Dosage: UNK, 2/D
     Route: 048
     Dates: start: 20000101
  5. ALBUTEROL [Concomitant]
     Indication: ASTHMA
     Dosage: UNK, AS NEEDED
     Route: 055

REACTIONS (9)
  - ASTHMA [None]
  - BLOOD GLUCOSE INCREASED [None]
  - DYSPNOEA [None]
  - HIGH FREQUENCY ABLATION [None]
  - HUNGER [None]
  - HYPOTHYROIDISM [None]
  - INCREASED UPPER AIRWAY SECRETION [None]
  - POSTNASAL DRIP [None]
  - WHEEZING [None]
